FAERS Safety Report 6516234-6 (Version None)
Quarter: 2009Q4

REPORT INFORMATION
  Report Type: 
  Country: None (occurrence: None)
  Receive Date: 20091214
  Receipt Date: 20090112
  Transmission Date: 20100525
  Serious: Yes (Other)
  Sender: FDA-Public Use
  Company Number: US-JNJFOC-20090102665

PATIENT
  Age: 24 Month
  Sex: Female
  Weight: 9.0719 kg

DRUGS (1)
  1. PEPCID COMPLETE [Suspect]
     Indication: ACCIDENTAL EXPOSURE
     Dosage: 4 DOSE (S), IN 1 TOTAL, ORAL
     Route: 048
     Dates: start: 20090112, end: 20090112

REACTIONS (2)
  - ACCIDENTAL DRUG INTAKE BY CHILD [None]
  - ACCIDENTAL OVERDOSE [None]
